FAERS Safety Report 18329741 (Version 1)
Quarter: 2020Q3

REPORT INFORMATION
  Report Type: Spontaneous
  Country: US (occurrence: US)
  Receive Date: 20200930
  Receipt Date: 20200930
  Transmission Date: 20201103
  Serious: No
  Sender: FDA-Public Use
  Company Number: None

PATIENT
  Age: 40 Year
  Sex: Female
  Weight: 93.15 kg

DRUGS (6)
  1. NATURE?THROID [Suspect]
     Active Substance: THYROID, PORCINE
     Indication: HYPOTHYROIDISM
     Dosage: ?          QUANTITY:1 TABLET(S);?
     Route: 048
     Dates: start: 20200829, end: 20200916
  2. VITAMIN B COMPLEX [Concomitant]
     Active Substance: CYANOCOBALAMIN\DEXPANTHENOL\NIACINAMIDE\PYRIDOXINE HYDROCHLORIDE\RIBOFLAVIN 5^-PHOSPHATE SODIUM\THIAMINE HYDROCHLORIDE\VITAMIN B COMPLEX
  3. LEVOTHROXINE 0200 MG [Concomitant]
  4. IRON [Concomitant]
     Active Substance: IRON
  5. VITAMIN D [Concomitant]
     Active Substance: VITAMIN D NOS
  6. WOMEN^S ONE?A?DAY VITAMIN [Concomitant]

REACTIONS (12)
  - Recalled product administered [None]
  - Product substitution issue [None]
  - Insomnia [None]
  - Somnolence [None]
  - Fatigue [None]
  - Depression [None]
  - Anxiety [None]
  - Emotional distress [None]
  - Panic attack [None]
  - Social avoidant behaviour [None]
  - Disturbance in attention [None]
  - Mood swings [None]

NARRATIVE: CASE EVENT DATE: 20200915
